FAERS Safety Report 6354467-2 (Version None)
Quarter: 2009Q3

REPORT INFORMATION
  Report Type: 
  Country: None (occurrence: None)
  Receive Date: 20090909
  Receipt Date: 20090826
  Transmission Date: 20100115
  Serious: Yes (Hospitalization)
  Sender: FDA-Public Use
  Company Number: 440019M08USA

PATIENT
  Age: 52 Year
  Sex: Female
  Weight: 50 kg

DRUGS (6)
  1. SEROSTIM [Suspect]
     Indication: CACHEXIA
     Dosage: 5 MG, 1 IN 1 DAYS, SUBCUTANEOUS
     Route: 058
     Dates: start: 20080512, end: 20080522
  2. TRUVADA [Suspect]
     Indication: HIV INFECTION
     Dosage: 1 IN 1 DAYS, ORAL
     Route: 048
     Dates: start: 20071119, end: 20080522
  3. RIBONAVIR (RITONAVIR) [Concomitant]
  4. ATAZANAVIR SULFATE [Concomitant]
  5. COZAAR [Concomitant]
  6. METOPROLOL (METOPROLOL /00376901/) [Concomitant]

REACTIONS (5)
  - ASTHENIA [None]
  - DECREASED APPETITE [None]
  - DIZZINESS [None]
  - FATIGUE [None]
  - RENAL FAILURE ACUTE [None]
